FAERS Safety Report 7363502-4 (Version None)
Quarter: 2011Q1

REPORT INFORMATION
  Report Type: 
  Country: None (occurrence: None)
  Receive Date: 20110321
  Receipt Date: 20110311
  Transmission Date: 20110831
  Serious: Yes (Hospitalization, Other)
  Sender: FDA-Public Use
  Company Number: IT-BRISTOL-MYERS SQUIBB COMPANY-15593585

PATIENT
  Age: 10 Year
  Sex: Male

DRUGS (7)
  1. METHOTREXATE [Suspect]
     Indication: ACUTE MYELOMONOCYTIC LEUKAEMIA
  2. CYCLOSPORINE [Suspect]
  3. METHYLPREDNISOLONE [Suspect]
     Indication: ACUTE MYELOMONOCYTIC LEUKAEMIA
  4. CYCLOPHOSPHAMIDE [Suspect]
     Indication: ACUTE MYELOMONOCYTIC LEUKAEMIA
  5. AZATHIOPRINE [Suspect]
     Indication: ACUTE MYELOMONOCYTIC LEUKAEMIA
  6. ANTI-THYMOCYTE GLOBULIN NOS [Suspect]
     Indication: ACUTE MYELOMONOCYTIC LEUKAEMIA
  7. RITUXIMAB [Suspect]
     Indication: ACUTE MYELOMONOCYTIC LEUKAEMIA

REACTIONS (5)
  - CYTOMEGALOVIRUS INFECTION [None]
  - EPSTEIN-BARR VIRUS INFECTION [None]
  - KAPOSI'S SARCOMA [None]
  - CRYPTOSPORIDIOSIS INFECTION [None]
  - ACUTE GRAFT VERSUS HOST DISEASE IN INTESTINE [None]
